FAERS Safety Report 6712769-1 (Version None)
Quarter: 2010Q2

REPORT INFORMATION
  Report Type: 
  Country: None (occurrence: None)
  Receive Date: 20100506
  Receipt Date: 20100429
  Transmission Date: 20101027
  Serious: Yes (Hospitalization)
  Sender: FDA-Public Use
  Company Number: US-JNJFOC-20100307272

PATIENT
  Sex: Female
  Weight: 60 kg

DRUGS (13)
  1. DURAGESIC-100 [Suspect]
     Indication: ARTHRALGIA
     Route: 062
  2. RECLAST [Suspect]
     Indication: DRUG USE FOR UNKNOWN INDICATION
     Route: 065
  3. FENTANYL CITRATE [Suspect]
     Indication: DRUG USE FOR UNKNOWN INDICATION
     Route: 062
  4. UNKNOWN MEDICATION [Concomitant]
     Route: 065
  5. REMICADE [Concomitant]
     Dosage: EVERY 6 TO 8 WEEKS
     Route: 065
  6. PREDNISONE [Concomitant]
     Route: 065
  7. METHOTREXATE [Concomitant]
     Route: 065
  8. POTASSIUM [Concomitant]
     Route: 065
  9. BYSTOLIC [Concomitant]
     Route: 065
  10. VITAMIN D [Concomitant]
     Route: 065
  11. CALCIUM [Concomitant]
     Route: 065
  12. ASACOL [Concomitant]
     Route: 065
  13. ESTRATEST [Concomitant]
     Route: 065

REACTIONS (4)
  - ARTHROPATHY [None]
  - BONE FORMATION INCREASED [None]
  - CONDITION AGGRAVATED [None]
  - RASH GENERALISED [None]
